FAERS Safety Report 5759431-X (Version None)
Quarter: 2008Q2

REPORT INFORMATION
  Report Type: 
  Country: None (occurrence: None)
  Receive Date: 20080605
  Receipt Date: 20080603
  Transmission Date: 20081010
  Serious: Yes (Other)
  Sender: FDA-Public Use
  Company Number: US-BRISTOL-MYERS SQUIBB COMPANY-14214118

PATIENT
  Age: 57 Year
  Sex: Female

DRUGS (1)
  1. ORENCIA [Suspect]
     Indication: RHEUMATOID ARTHRITIS
     Dosage: INFUSION START - 28JUN07;INFUSION STOPPED AFTER 20MINS AND NOT COMPLETED.
     Route: 042
     Dates: start: 20070628

REACTIONS (6)
  - ASTHENIA [None]
  - DYSGEUSIA [None]
  - FEELING HOT [None]
  - FLUSHING [None]
  - HYPOAESTHESIA [None]
  - PARAESTHESIA [None]
